FAERS Safety Report 23151728 (Version 1)
Quarter: 2023Q4

REPORT INFORMATION
  Report Type: Spontaneous
  Country: ES (occurrence: ES)
  Receive Date: 20231107
  Receipt Date: 20231107
  Transmission Date: 20240110
  Serious: Yes (Other)
  Sender: FDA-Public Use
  Company Number: ES-STRAGNORDP-2023000804

PATIENT
  Age: 68 Year
  Sex: Female

DRUGS (4)
  1. LENALIDOMIDE [Suspect]
     Active Substance: LENALIDOMIDE
     Indication: Plasma cell myeloma
     Dosage: MAINTENANCE
     Route: 048
  2. THALIDOMIDE [Concomitant]
     Active Substance: THALIDOMIDE
     Indication: Plasma cell myeloma
     Dosage: SECOND CR WAS ACHIEVED WITH BORTEZOMIB, THALIDOMIDE AND DEXAMETHASONE (VTDTD) AND CONSOLIDATION WITH
  3. DEXAMETHASONE [Concomitant]
     Active Substance: DEXAMETHASONE
     Indication: Plasma cell myeloma
     Dosage: SECOND CR WAS ACHIEVED WITH BORTEZOMIB, THALIDOMIDE AND DEXAMETHASONE (VTDTD) AND CONSOLIDATION WITH
  4. BORTEZOMIB [Concomitant]
     Active Substance: BORTEZOMIB
     Indication: Plasma cell myeloma
     Dosage: SECOND CR WAS ACHIEVED WITH BORTEZOMIB, THALIDOMIDE AND DEXAMETHASONE (VTDTD) AND CONSOLIDATION WITH

REACTIONS (1)
  - Gastrointestinal toxicity [Unknown]
